FAERS Safety Report 13383519 (Version 1)
Quarter: 2017Q1

REPORT INFORMATION
  Report Type: Spontaneous
  Country: JP (occurrence: JP)
  Receive Date: 20170329
  Receipt Date: 20170329
  Transmission Date: 20170429
  Serious: Yes (Hospitalization)
  Sender: FDA-Public Use
  Company Number: JP-TEVA-753303ROM

PATIENT
  Age: 31 Year
  Sex: Female

DRUGS (2)
  1. FUROSEMIDE. [Suspect]
     Active Substance: FUROSEMIDE
     Dosage: }200 MG PER DAY FOR AT LEAST THE LAST 15 YEARS.
     Route: 065
  2. FUROSEMIDE. [Suspect]
     Active Substance: FUROSEMIDE
     Indication: DRUG ABUSE
     Dosage: }200 MG PER DAY FOR AT LEAST THE LAST 15 YEARS.
     Route: 065

REACTIONS (2)
  - Drug abuse [Unknown]
  - Nephrocalcinosis [Unknown]
